FAERS Safety Report 8836947 (Version 1)
Quarter: 2012Q4

REPORT INFORMATION
  Report Type: 
  Country: US (occurrence: US)
  Receive Date: 20121011
  Receipt Date: 20121011
  Transmission Date: 20130627
  Serious: Yes (Hospitalization)
  Sender: FDA-Public Use
  Company Number: US-AMGEN-USASP2012064076

PATIENT
  Age: 54 Year
  Sex: Female
  Weight: 93.2 kg

DRUGS (5)
  1. PEGFILGRASTIM [Suspect]
     Indication: BREAST CANCER
     Dosage: 6 mg, per chemo regim
     Route: 058
     Dates: start: 20120614
  2. BEVACIZUMAB [Suspect]
     Indication: BREAST CANCER
     Dosage: UNK UNK, per chemo regim
     Route: 042
     Dates: start: 20100614
  3. CYCLOPHOSPHAMIDE [Suspect]
     Indication: BREAST CANCER
     Dosage: 600 mg/m2, per chemo regim
     Route: 042
     Dates: start: 20100614
  4. DOXORUBICIN [Suspect]
     Indication: BREAST CANCER
     Dosage: 60 mg/m2, per chemo regim
     Route: 042
     Dates: start: 20100614
  5. PACLITAXEL [Suspect]
     Indication: BREAST CANCER
     Dosage: 80 mg/m2, per chemo regim
     Route: 042
     Dates: start: 20100614

REACTIONS (2)
  - Pyelonephritis [Recovered/Resolved]
  - Cystitis [Recovered/Resolved]
